FAERS Safety Report 8821819 (Version 1)
Quarter: 2012Q4

REPORT INFORMATION
  Report Type: 
  Country: TR (occurrence: TR)
  Receive Date: 20121002
  Receipt Date: 20121002
  Transmission Date: 20130627
  Serious: Yes (Other)
  Sender: FDA-Public Use
  Company Number: TR-MYLANLABS-2012S1019793

PATIENT
  Age: 32 Year
  Sex: Male

DRUGS (2)
  1. QUETIAPINE [Suspect]
     Indication: DEPRESSION
     Dosage: 200 mg/day; immediate release
     Route: 065
  2. QUETIAPINE [Suspect]
     Indication: DEPRESSION
     Dosage: 400 mg/day
     Route: 065

REACTIONS (1)
  - Acute generalised exanthematous pustulosis [Recovering/Resolving]
